FAERS Safety Report 4335305-6 (Version None)
Quarter: 2004Q2

REPORT INFORMATION
  Report Type: 
  Country: None (occurrence: None)
  Receive Date: 20040408
  Receipt Date: 20040408
  Transmission Date: 20050107
  Serious: Yes (Other)
  Sender: FDA-Public Use
  Company Number: None

PATIENT
  Sex: Male
  Weight: 86.637 kg

DRUGS (9)
  1. ETANERCEPT  25 MG [Suspect]
     Indication: RHEUMATOID ARTHRITIS
     Dosage: 25 MG TWICE WEEK  SUBCUTANEOUS
     Route: 058
     Dates: start: 20010319, end: 20040224
  2. METHOTREXATE [Concomitant]
  3. HYDROXYCHLOROQUINE SULFATE [Concomitant]
  4. FOLIC ACID [Concomitant]
  5. CELECOXIB [Concomitant]
  6. ROFECOXIB [Concomitant]
  7. RABEPRAZOLE SODIUM [Concomitant]
  8. SUINDAC [Concomitant]
  9. NAPROSYN/MISOPROSTOL [Concomitant]

REACTIONS (1)
  - PLATELET COUNT DECREASED [None]
